FAERS Safety Report 23648646 (Version 1)
Quarter: 2024Q1

REPORT INFORMATION
  Report Type: Spontaneous
  Country: US (occurrence: US)
  Receive Date: 20240319
  Receipt Date: 20240319
  Transmission Date: 20240409
  Serious: Yes (Hospitalization, Other)
  Sender: FDA-Public Use
  Company Number: US-ELI_LILLY_AND_COMPANY-US202403005554

PATIENT
  Age: 74 Year
  Sex: Male

DRUGS (13)
  1. MOUNJARO [Suspect]
     Active Substance: TIRZEPATIDE
     Indication: Oedema
     Dosage: 2.5 MG, UNKNOWN
     Route: 065
     Dates: start: 202305
  2. MOUNJARO [Suspect]
     Active Substance: TIRZEPATIDE
     Indication: Oedema
     Dosage: 2.5 MG, UNKNOWN
     Route: 065
     Dates: start: 202305
  3. MOUNJARO [Suspect]
     Active Substance: TIRZEPATIDE
     Indication: Oedema
     Dosage: 2.5 MG, UNKNOWN
     Route: 065
     Dates: start: 202305
  4. MOUNJARO [Suspect]
     Active Substance: TIRZEPATIDE
     Indication: Oedema
     Dosage: 2.5 MG, UNKNOWN
     Route: 065
     Dates: start: 202305
  5. MOUNJARO [Suspect]
     Active Substance: TIRZEPATIDE
     Indication: Oedema
     Dosage: 5 MG, UNKNOWN
     Route: 065
  6. MOUNJARO [Suspect]
     Active Substance: TIRZEPATIDE
     Indication: Oedema
     Dosage: 5 MG, UNKNOWN
     Route: 065
  7. MOUNJARO [Suspect]
     Active Substance: TIRZEPATIDE
     Indication: Oedema
     Dosage: 5 MG, UNKNOWN
     Route: 065
  8. MOUNJARO [Suspect]
     Active Substance: TIRZEPATIDE
     Indication: Oedema
     Dosage: 5 MG, UNKNOWN
     Route: 065
  9. MOUNJARO [Suspect]
     Active Substance: TIRZEPATIDE
     Indication: Oedema
     Dosage: 7.5 MG, OTHER (EVERY 2-3 WEEKS)
     Route: 065
  10. MOUNJARO [Suspect]
     Active Substance: TIRZEPATIDE
     Indication: Oedema
     Dosage: 7.5 MG, OTHER (EVERY 2-3 WEEKS)
     Route: 065
  11. MOUNJARO [Suspect]
     Active Substance: TIRZEPATIDE
     Indication: Oedema
     Dosage: 7.5 MG, OTHER (EVERY 2-3 WEEKS)
     Route: 065
  12. MOUNJARO [Suspect]
     Active Substance: TIRZEPATIDE
     Indication: Oedema
     Dosage: 7.5 MG, OTHER (EVERY 2-3 WEEKS)
     Route: 065
  13. INDOMETHACIN [Concomitant]
     Active Substance: INDOMETHACIN
     Indication: Oedema

REACTIONS (14)
  - Disease progression [Unknown]
  - Brain injury [Unknown]
  - Back pain [Unknown]
  - Neuralgia [Unknown]
  - Amnesia [Unknown]
  - Productive cough [Unknown]
  - Cough [Unknown]
  - Suspected COVID-19 [Unknown]
  - Pneumonia [Unknown]
  - White blood cell count increased [Unknown]
  - Splenomegaly [Unknown]
  - Hypoacusis [Unknown]
  - Off label use [Unknown]
  - Eczema [Unknown]

NARRATIVE: CASE EVENT DATE: 20230501
